FAERS Safety Report 10500675 (Version 1)
Quarter: 2014Q4

REPORT INFORMATION
  Report Type: Spontaneous
  Country: DE (occurrence: DE)
  Receive Date: 20141006
  Receipt Date: 20141006
  Transmission Date: 20150528
  Serious: Yes (Congenital Anomaly, Other)
  Sender: FDA-Public Use
  Company Number: GXKR2014DE003710

PATIENT

DRUGS (2)
  1. FOLIO FORTE [Concomitant]
     Active Substance: FOLIC ACID\VITAMINS
     Indication: PROPHYLAXIS OF NEURAL TUBE DEFECT
     Dosage: 0.8 [MG/D ]
     Route: 064
  2. LAMOTRIGINE. [Suspect]
     Active Substance: LAMOTRIGINE
     Indication: BIPOLAR DISORDER
     Dosage: 100 [MG/D ]
     Route: 064
     Dates: start: 20130402, end: 20140116

REACTIONS (4)
  - Atrial septal defect [Unknown]
  - Neonatal asphyxia [Recovered/Resolved]
  - Coordination abnormal [Recovering/Resolving]
  - Haemangioma [Unknown]

NARRATIVE: CASE EVENT DATE: 20140116
